FAERS Safety Report 10952101 (Version 1)
Quarter: 2015Q1

REPORT INFORMATION
  Report Type: Spontaneous
  Country: IN (occurrence: None)
  Receive Date: 20150324
  Receipt Date: 20150324
  Transmission Date: 20150721
  Serious: Yes (Hospitalization)
  Sender: FDA-Public Use
  Company Number: None

PATIENT
  Age: 59 Year
  Sex: Female

DRUGS (5)
  1. T. OFLOXCIN [Concomitant]
  2. MEROPENEM. [Concomitant]
     Active Substance: MEROPENEM
  3. RCINEX [Suspect]
     Active Substance: ISONIAZID\RIFAMPIN
     Indication: TUBERCULOSIS OF CENTRAL NERVOUS SYSTEM
     Dosage: 1 TABLET
     Route: 048
  4. AMIKAEIN [Concomitant]
  5. T. ETHAMBUTOL [Concomitant]

REACTIONS (2)
  - Renal failure [None]
  - Hepatic failure [None]
